FAERS Safety Report 14313489 (Version 1)
Quarter: 2017Q4

REPORT INFORMATION
  Report Type: Spontaneous
  Country: US (occurrence: US)
  Receive Date: 20171221
  Receipt Date: 20171221
  Transmission Date: 20180321
  Serious: No
  Sender: FDA-Public Use
  Company Number: US-GLAXOSMITHKLINE-US2017191239

PATIENT
  Age: 56 Year
  Sex: Female

DRUGS (12)
  1. BENLYSTA [Suspect]
     Active Substance: BELIMUMAB
     Indication: SYSTEMIC LUPUS ERYTHEMATOSUS
     Dosage: UNK
     Route: 042
     Dates: start: 201705, end: 201710
  2. PLAQUENIL [Concomitant]
     Active Substance: HYDROXYCHLOROQUINE SULFATE
  3. KEPPRA [Concomitant]
     Active Substance: LEVETIRACETAM
  4. METHADONE [Concomitant]
     Active Substance: METHADONE HYDROCHLORIDE
  5. ZOFRAN [Concomitant]
     Active Substance: ONDANSETRON HYDROCHLORIDE
  6. ARIXTRA [Concomitant]
     Active Substance: FONDAPARINUX SODIUM
  7. BENLYSTA [Suspect]
     Active Substance: BELIMUMAB
     Indication: SYSTEMIC LUPUS ERYTHEMATOSUS
     Dosage: 200 MG, CYC
     Route: 058
     Dates: start: 20171209
  8. LYRICA [Concomitant]
     Active Substance: PREGABALIN
  9. MYFORTIC [Concomitant]
     Active Substance: MYCOPHENOLATE SODIUM
  10. NORTRIPTYLINE [Concomitant]
     Active Substance: NORTRIPTYLINE
  11. ASPIRIN. [Concomitant]
     Active Substance: ASPIRIN
  12. LINZESS [Concomitant]
     Active Substance: LINACLOTIDE

REACTIONS (30)
  - Butterfly rash [Not Recovered/Not Resolved]
  - Wrong technique in device usage process [Unknown]
  - Headache [Not Recovered/Not Resolved]
  - Anxiety [Not Recovered/Not Resolved]
  - Speech disorder [Unknown]
  - Memory impairment [Not Recovered/Not Resolved]
  - Paraesthesia [Unknown]
  - Neuropathy peripheral [Unknown]
  - Vascular access complication [Unknown]
  - Rhinorrhoea [Not Recovered/Not Resolved]
  - Device use error [Unknown]
  - Pain in extremity [Not Recovered/Not Resolved]
  - Poor quality sleep [Unknown]
  - Oropharyngeal pain [Unknown]
  - Accidental exposure to product [Recovered/Resolved]
  - Injection site swelling [Unknown]
  - Balance disorder [Unknown]
  - Night sweats [Not Recovered/Not Resolved]
  - Condition aggravated [Not Recovered/Not Resolved]
  - Burning sensation [Unknown]
  - Drug dose omission [Unknown]
  - Injection site pain [Unknown]
  - Abdominal pain [Unknown]
  - Dysphemia [Unknown]
  - Pain [Not Recovered/Not Resolved]
  - Dizziness [Unknown]
  - Dermatitis [Not Recovered/Not Resolved]
  - Device leakage [Unknown]
  - Amnesia [Not Recovered/Not Resolved]
  - Confusional state [Unknown]

NARRATIVE: CASE EVENT DATE: 2017
